FAERS Safety Report 14339838 (Version 1)
Quarter: 2017Q4

REPORT INFORMATION
  Report Type: Spontaneous
  Country: GB (occurrence: GB)
  Receive Date: 20171230
  Receipt Date: 20171230
  Transmission Date: 20180321
  Serious: Yes (Disabling)
  Sender: FDA-Public Use
  Company Number: GB-MYLANLABS-2017M1083203

PATIENT
  Age: 70 Year
  Sex: Male

DRUGS (4)
  1. METRONIDAZOLE. [Suspect]
     Active Substance: METRONIDAZOLE
     Indication: GINGIVITIS
     Dosage: FOR 7 DAYS
  2. LANSOPRAZOLE. [Concomitant]
     Active Substance: LANSOPRAZOLE
  3. LERCANIDIPINE [Concomitant]
     Active Substance: LERCANIDIPINE
  4. RAMIPRIL. [Concomitant]
     Active Substance: RAMIPRIL

REACTIONS (4)
  - Spinal pain [Unknown]
  - Neck pain [Recovered/Resolved]
  - Asthenia [Unknown]
  - Musculoskeletal pain [Not Recovered/Not Resolved]
